FAERS Safety Report 5308324-0 (Version None)
Quarter: 2007Q2

REPORT INFORMATION
  Report Type: 
  Country: None (occurrence: None)
  Receive Date: 20070420
  Receipt Date: 20070417
  Transmission Date: 20071010
  Serious: Yes (Hospitalization, Other)
  Sender: FDA-Public Use
  Company Number: 2006PV025074

PATIENT
  Age: 69 Year
  Sex: Female

DRUGS (8)
  1. BYETTA [Suspect]
     Indication: DIABETES MELLITUS NON-INSULIN-DEPENDENT
     Dosage: 10 MCG; 5 MCG; BID; SC
     Route: 058
     Dates: start: 20060818, end: 20061024
  2. METFORMIN HCL [Concomitant]
  3. AVANDIA [Concomitant]
  4. HYZAAR [Concomitant]
  5. LIPITOR [Concomitant]
  6. PRILOSEC [Concomitant]
  7. ASPIRIN [Concomitant]
  8. CELEBREX [Concomitant]

REACTIONS (10)
  - ANOREXIA [None]
  - BREAST CANCER FEMALE [None]
  - COLITIS ISCHAEMIC [None]
  - GASTRITIS [None]
  - HAEMATOCHEZIA [None]
  - HAEMOGLOBIN DECREASED [None]
  - INFLUENZA LIKE ILLNESS [None]
  - NAUSEA [None]
  - PNEUMONIA [None]
  - WEIGHT DECREASED [None]
